FAERS Safety Report 6452687 (Version 4)
Quarter: 2012Q4

REPORT INFORMATION
  Report Type: 
  Country: GB (occurrence: HK)
  Receive Date: 20071026
  Receipt Date: 20121025
  Transmission Date: 20130627
  Serious: Yes (Hospitalization)
  Sender: FDA-Public Use
  Company Number: PHHO2007HK13749

PATIENT
  Age: 26 Year
  Sex: Female
  Weight: 41.8 kg

DRUGS (4)
  1. ICL670A [Suspect]
     Indication: BLOOD IRON INCREASED
     Dosage: 1250 mg, QD
     Route: 048
     Dates: start: 20070420, end: 20070814
  2. FOLIC ACID [Concomitant]
  3. PREMARIN [Concomitant]
     Indication: DELAYED PUBERTY
  4. PROVERA [Concomitant]
     Indication: DELAYED PUBERTY

REACTIONS (8)
  - Renal tubular disorder [Recovered/Resolved with Sequelae]
  - Oedema peripheral [Recovered/Resolved with Sequelae]
  - Electrolyte imbalance [Recovered/Resolved with Sequelae]
  - Myalgia [Recovered/Resolved with Sequelae]
  - Blood creatinine increased [Recovered/Resolved with Sequelae]
  - Blood urea increased [Recovered/Resolved with Sequelae]
  - Creatinine renal clearance decreased [Recovered/Resolved with Sequelae]
  - Proteinuria [Recovered/Resolved with Sequelae]
